FAERS Safety Report 12959656 (Version 1)
Quarter: 2016Q4

REPORT INFORMATION
  Report Type: Spontaneous
  Country: US (occurrence: US)
  Receive Date: 20161118
  Receipt Date: 20161118
  Transmission Date: 20170207
  Serious: No
  Sender: FDA-Public Use
  Company Number: None

PATIENT
  Age: 26 Year
  Sex: Female
  Weight: 148.5 kg

DRUGS (2)
  1. AMETHIA (GENERIC OF SEASONIQUE BIRTH CONTROL) [Concomitant]
  2. DULOXETINE HCL [Suspect]
     Active Substance: DULOXETINE HYDROCHLORIDE
     Indication: MIGRAINE
     Dates: start: 20160422, end: 20161115

REACTIONS (5)
  - Dizziness [None]
  - Hypoaesthesia [None]
  - Coordination abnormal [None]
  - Drug withdrawal syndrome [None]
  - Impaired work ability [None]
